FAERS Safety Report 6904642-0 (Version None)
Quarter: 2010Q3

REPORT INFORMATION
  Report Type: 
  Country: None (occurrence: None)
  Receive Date: 20100804
  Receipt Date: 20090624
  Transmission Date: 20110219
  Serious: No
  Sender: FDA-Public Use
  Company Number: US-PFIZER INC-2009216083

PATIENT
  Sex: Female
  Weight: 61.224 kg

DRUGS (4)
  1. LYRICA [Suspect]
     Indication: FIBROMYALGIA
     Dosage: 50 MG, 1X/DAY
     Dates: start: 20080101
  2. DOXEPIN [Concomitant]
     Dosage: UNK
  3. CYCLOBENZAPRINE [Concomitant]
     Dosage: UNK
  4. NAPROXEN [Concomitant]
     Dosage: UNK

REACTIONS (15)
  - BLOOD PRESSURE FLUCTUATION [None]
  - DYSPHONIA [None]
  - DYSPNOEA [None]
  - FATIGUE [None]
  - FIBROMYALGIA [None]
  - GLUCOSE TOLERANCE IMPAIRED [None]
  - HYPERTENSION [None]
  - OEDEMA PERIPHERAL [None]
  - OROPHARYNGEAL PAIN [None]
  - RASH [None]
  - SKIN DISORDER [None]
  - SKIN LACERATION [None]
  - TOTAL LUNG CAPACITY DECREASED [None]
  - TREMOR [None]
  - WEIGHT INCREASED [None]
